FAERS Safety Report 13598325 (Version 2)
Quarter: 2017Q2

REPORT INFORMATION
  Report Type: Report from Study
  Country: CN (occurrence: CN)
  Receive Date: 20170531
  Receipt Date: 20170608
  Transmission Date: 20170830
  Serious: Yes (Hospitalization)
  Sender: FDA-Public Use
  Company Number: CN-ASTELLAS-2017US019311

PATIENT
  Sex: Female

DRUGS (1)
  1. ERLOTINIB [Suspect]
     Active Substance: ERLOTINIB
     Indication: NON-SMALL CELL LUNG CANCER
     Route: 048
     Dates: start: 20161017

REACTIONS (7)
  - Oedema peripheral [Unknown]
  - Asthma [Unknown]
  - Chest discomfort [Unknown]
  - Heart rate increased [Unknown]
  - Hypoxia [Unknown]
  - Movement disorder [Unknown]
  - Pneumonia [Unknown]
